FAERS Safety Report 10047969 (Version 2)
Quarter: 2014Q1

REPORT INFORMATION
  Report Type: Spontaneous
  Country: US (occurrence: US)
  Receive Date: 20140331
  Receipt Date: 20140331
  Transmission Date: 20141002
  Serious: No
  Sender: FDA-Public Use
  Company Number: US-PFIZER INC-2012145318

PATIENT
  Age: 55 Year
  Sex: Male

DRUGS (2)
  1. RELPAX [Suspect]
     Indication: MIGRAINE
     Dosage: 40 MG, DAILY (AS NEEDED)
  2. RELPAX [Suspect]
     Dosage: MORE AND MORE

REACTIONS (3)
  - Nervousness [Unknown]
  - Headache [Unknown]
  - Stress [Unknown]
